FAERS Safety Report 6108792-0 (Version None)
Quarter: 2009Q1

REPORT INFORMATION
  Report Type: 
  Country: None (occurrence: None)
  Receive Date: 20090310
  Receipt Date: 20090302
  Transmission Date: 20090719
  Serious: Yes (Other)
  Sender: FDA-Public Use
  Company Number: ES-JNJFOC-20090301023

PATIENT
  Age: 67 Year
  Sex: Male

DRUGS (7)
  1. RISPERIDONE [Suspect]
     Route: 048
  2. RISPERIDONE [Suspect]
     Route: 048
  3. RISPERIDONE [Suspect]
     Indication: PSYCHOTIC DISORDER
     Route: 048
  4. CARBAMAZEPINE [Concomitant]
     Indication: PSYCHOTIC DISORDER
     Route: 048
  5. ALLOPURINOL [Concomitant]
     Indication: GOUT
     Route: 048
  6. CAPTOPRIL [Concomitant]
     Indication: HYPERTENSION
     Route: 048
  7. GLYBENCLAMIDE [Concomitant]
     Indication: DIABETES MELLITUS
     Route: 048

REACTIONS (9)
  - ASPARTATE AMINOTRANSFERASE [None]
  - BLOOD GLUCOSE INCREASED [None]
  - BLOOD PRESSURE SYSTOLIC INCREASED [None]
  - CARDIAC MURMUR [None]
  - HEPATOMEGALY [None]
  - MAJOR DEPRESSION [None]
  - MOOD ALTERED [None]
  - SLEEP DISORDER [None]
  - TREMOR [None]
